FAERS Safety Report 6931945-6 (Version None)
Quarter: 2010Q3

REPORT INFORMATION
  Report Type: 
  Country: None (occurrence: None)
  Receive Date: 20100819
  Receipt Date: 20100813
  Transmission Date: 20110219
  Serious: Yes (Hospitalization)
  Sender: FDA-Public Use
  Company Number: KR-BRISTOL-MYERS SQUIBB COMPANY-14985295

PATIENT
  Age: 58 Year
  Sex: Male

DRUGS (2)
  1. IXABEPILONE [Suspect]
     Indication: GASTRIC CANCER
     Dosage: 73MG:10FEB2010 50MG: 10MAR2010-CONT
     Route: 042
     Dates: start: 20100210
  2. MEGESTROL [Concomitant]
     Dosage: 17FEB2010-17FEB2010 24FEB2010-CONTI
     Dates: start: 20100217

REACTIONS (3)
  - ANAL ABSCESS [None]
  - MALIGNANT NEOPLASM PROGRESSION [None]
  - NEUTROPENIA [None]
